FAERS Safety Report 22296659 (Version 1)
Quarter: 2023Q2

REPORT INFORMATION
  Report Type: Report from Study
  Country: EE (occurrence: EE)
  Receive Date: 20230508
  Receipt Date: 20230508
  Transmission Date: 20230721
  Serious: No
  Sender: FDA-Public Use
  Company Number: EE-ABBVIE-4749160

PATIENT
  Age: 40 Year
  Sex: Male
  Weight: 94.2 kg

DRUGS (5)
  1. PLACEBO [Suspect]
     Active Substance: UNSPECIFIED INGREDIENT
     Indication: Psoriatic arthropathy
     Route: 058
     Dates: start: 20190206, end: 20190710
  2. UPADACITINIB [Suspect]
     Active Substance: UPADACITINIB
     Indication: Psoriatic arthropathy
     Route: 048
     Dates: start: 20190206, end: 20190723
  3. ARCOXIA [Concomitant]
     Active Substance: ETORICOXIB
     Indication: Psoriatic arthropathy
     Route: 048
     Dates: start: 20180214
  4. UPADACITINIB [Suspect]
     Active Substance: UPADACITINIB
     Indication: Psoriatic arthropathy
     Route: 048
     Dates: start: 20190724
  5. ARAVA [Concomitant]
     Active Substance: LEFLUNOMIDE
     Indication: Psoriatic arthropathy
     Route: 048
     Dates: start: 20181003

REACTIONS (1)
  - Drug-induced liver injury [Recovered/Resolved]

NARRATIVE: CASE EVENT DATE: 20200819
